FAERS Safety Report 6383258-1 (Version None)
Quarter: 2009Q3

REPORT INFORMATION
  Report Type: 
  Country: None (occurrence: None)
  Receive Date: 20090929
  Receipt Date: 20090914
  Transmission Date: 20100115
  Serious: Yes (Other)
  Sender: FDA-Public Use
  Company Number: CIP09002577

PATIENT
  Age: 83 Year
  Sex: Female

DRUGS (5)
  1. ACTONEL [Suspect]
     Dosage: 150MG, 1/MONTH
     Dates: start: 20081001, end: 20090301
  2. ATENOLOL [Concomitant]
  3. NORVASC [Concomitant]
  4. ATIVAN [Concomitant]
  5. SYNTHROID [Concomitant]

REACTIONS (10)
  - ANXIETY [None]
  - BONE PAIN [None]
  - FALL [None]
  - LOSS OF CONTROL OF LEGS [None]
  - MYALGIA [None]
  - NEUROPATHY PERIPHERAL [None]
  - PRURITUS [None]
  - SCAB [None]
  - SKIN NODULE [None]
  - TENDON PAIN [None]
